FAERS Safety Report 10685186 (Version 1)
Quarter: 2014Q4

REPORT INFORMATION
  Report Type: Spontaneous
  Country: US (occurrence: None)
  Receive Date: 20141230
  Receipt Date: 20141230
  Transmission Date: 20150529
  Serious: No
  Sender: FDA-Public Use
  Company Number: None

PATIENT
  Age: 91 Year
  Sex: Female
  Weight: 96.7 kg

DRUGS (16)
  1. MULTIVITAMINS + MINERALS [Concomitant]
  2. VD3 [Concomitant]
  3. METRONIDAZOLE. [Suspect]
     Active Substance: METRONIDAZOLE
  4. HYDRALYSINE [Concomitant]
  5. CLONIDINE. [Concomitant]
     Active Substance: CLONIDINE
  6. LEVOTHYROXINE [Concomitant]
     Active Substance: LEVOTHYROXINE
  7. MILKTHISTLE - LIVER [Concomitant]
  8. VIT.C [Concomitant]
  9. TETRACYCLINE [Suspect]
     Active Substance: TETRACYCLINE
     Indication: HELICOBACTER GASTRITIS
     Dosage: BY MOUTH
     Dates: start: 20141126, end: 20141127
  10. TETRACYCLINE [Suspect]
     Active Substance: TETRACYCLINE
     Indication: ENTERITIS INFECTIOUS
     Dosage: BY MOUTH
     Dates: start: 20141126, end: 20141127
  11. WARFARIN [Concomitant]
     Active Substance: WARFARIN
  12. POTASSIUM [Concomitant]
     Active Substance: POTASSIUM
  13. OMEGA Q PLUS [Concomitant]
  14. FUROSEMIDE. [Concomitant]
     Active Substance: FUROSEMIDE
  15. CQ10 [Concomitant]
     Active Substance: UBIDECARENONE
  16. B VIT. [Concomitant]

REACTIONS (8)
  - Diarrhoea [None]
  - Headache [None]
  - Lip swelling [None]
  - Chest pain [None]
  - Abdominal pain upper [None]
  - Hypoaesthesia [None]
  - Dizziness [None]
  - Nausea [None]

NARRATIVE: CASE EVENT DATE: 20141126
